FAERS Safety Report 6202545-0 (Version None)
Quarter: 2009Q2

REPORT INFORMATION
  Report Type: 
  Country: None (occurrence: None)
  Receive Date: 20090518
  Receipt Date: 20090307
  Transmission Date: 20091009
  Serious: No
  Sender: FDA-Public Use
  Company Number: WAES 0903USA01372

PATIENT
  Age: 61 Year
  Sex: Female
  Weight: 64.4108 kg

DRUGS (6)
  1. JANUVIA [Suspect]
     Indication: TYPE 2 DIABETES MELLITUS
     Dosage: 50 MG/DAILY/PO; 50 MG/BID/PO
     Route: 048
     Dates: start: 20090228
  2. JANUVIA [Suspect]
     Indication: TYPE 2 DIABETES MELLITUS
     Dosage: 50 MG/DAILY/PO; 50 MG/BID/PO
     Route: 048
     Dates: start: 20090304
  3. AMOXICILLIN [Suspect]
     Dates: start: 20090304
  4. AMBIEN [Concomitant]
  5. QVAR 40 [Concomitant]
  6. METFORMIN HCL [Concomitant]

REACTIONS (3)
  - DIZZINESS [None]
  - MALAISE [None]
  - MUSCULAR WEAKNESS [None]
